FAERS Safety Report 25447398 (Version 1)
Quarter: 2025Q2

REPORT INFORMATION
  Report Type: Spontaneous
  Country: FR (occurrence: FR)
  Receive Date: 20250617
  Receipt Date: 20250617
  Transmission Date: 20250717
  Serious: Yes (Hospitalization, Other)
  Sender: SANOFI AVENTIS
  Company Number: FR-SANOFI-02554873

PATIENT
  Age: 68 Year
  Sex: Male

DRUGS (1)
  1. ARAVA [Suspect]
     Active Substance: LEFLUNOMIDE
     Indication: Ankylosing spondylitis
     Dates: end: 20250610

REACTIONS (3)
  - Acute hepatitis B [Unknown]
  - Transaminases increased [Unknown]
  - Product use in unapproved indication [Unknown]
